FAERS Safety Report 21491013 (Version 1)
Quarter: 2022Q4

REPORT INFORMATION
  Report Type: Other
  Country: CN (occurrence: CN)
  Receive Date: 20221021
  Receipt Date: 20221021
  Transmission Date: 20230112
  Serious: Yes (Other)
  Sender: FDA-Public Use
  Company Number: CN-ASTELLAS-2022US037036

PATIENT
  Age: 94 Year
  Sex: Female

DRUGS (1)
  1. MYCAMINE [Suspect]
     Active Substance: MICAFUNGIN SODIUM
     Indication: Antifungal treatment
     Route: 042
     Dates: start: 20220912, end: 20220913

REACTIONS (13)
  - Confusional state [Recovering/Resolving]
  - Drug hypersensitivity [Recovering/Resolving]
  - Dysphoria [Recovering/Resolving]
  - Cyanosis [Recovering/Resolving]
  - Heart rate increased [Recovering/Resolving]
  - Hypertension [Recovering/Resolving]
  - Tremor [Recovering/Resolving]
  - Breath sounds abnormal [Recovering/Resolving]
  - Mydriasis [Recovering/Resolving]
  - Rales [Recovering/Resolving]
  - Coma [Recovering/Resolving]
  - Oxygen saturation decreased [Recovering/Resolving]
  - Respiratory rate increased [Recovering/Resolving]

NARRATIVE: CASE EVENT DATE: 20220913
